FAERS Safety Report 4307542-8 (Version None)
Quarter: 2004Q1

REPORT INFORMATION
  Report Type: 
  Country: None (occurrence: None)
  Receive Date: 20040226
  Receipt Date: 20040218
  Transmission Date: 20041129
  Serious: Yes (Other)
  Sender: FDA-Public Use
  Company Number: US-JNJFOC-20040104279

PATIENT
  Age: 65 Year
  Sex: Male
  Weight: 105.2345 kg

DRUGS (4)
  1. REMICADE [Suspect]
     Indication: COLITIS ULCERATIVE
     Dosage: 500 MG, INTRAVENOUS
     Route: 042
     Dates: start: 20031007
  2. REMICADE [Suspect]
     Indication: CROHN'S DISEASE
     Dosage: 500 MG, INTRAVENOUS
     Route: 042
     Dates: start: 20031007
  3. REMICADE [Suspect]
     Indication: COLITIS ULCERATIVE
     Dosage: 500 MG, INTRAVENOUS
     Route: 042
     Dates: start: 20031021
  4. REMICADE [Suspect]
     Indication: CROHN'S DISEASE
     Dosage: 500 MG, INTRAVENOUS
     Route: 042
     Dates: start: 20031021

REACTIONS (1)
  - LUPUS-LIKE SYNDROME [None]
